FAERS Safety Report 7036370-8 (Version None)
Quarter: 2010Q4

REPORT INFORMATION
  Report Type: 
  Country: None (occurrence: None)
  Receive Date: 20101008
  Receipt Date: 20101006
  Transmission Date: 20110411
  Serious: Yes (Other)
  Sender: FDA-Public Use
  Company Number: GB-MERCK-1010GBR00026

PATIENT
  Age: 67 Year
  Sex: Female
  Weight: 74 kg

DRUGS (3)
  1. COZAAR [Suspect]
     Indication: HYPERTENSION
     Route: 048
     Dates: start: 20070221, end: 20100720
  2. DIAZEPAM [Concomitant]
     Route: 065
  3. MEBEVERINE HYDROCHLORIDE [Concomitant]
     Route: 065

REACTIONS (6)
  - DEPRESSED MOOD [None]
  - DYSPNOEA [None]
  - HYPERTENSION [None]
  - PALPITATIONS [None]
  - SYNCOPE [None]
  - TACHYCARDIA [None]
